FAERS Safety Report 22240499 (Version 1)
Quarter: 2023Q2

REPORT INFORMATION
  Report Type: Report from Study
  Country: US (occurrence: US)
  Receive Date: 20230421
  Receipt Date: 20230421
  Transmission Date: 20230721
  Serious: Yes (Hospitalization, Other)
  Sender: FDA-Public Use
  Company Number: US-GILEAD-2023-0624922

PATIENT
  Age: 58 Year
  Sex: Male

DRUGS (2)
  1. AXICABTAGENE CILOLEUCEL [Suspect]
     Active Substance: AXICABTAGENE CILOLEUCEL
     Indication: Diffuse large B-cell lymphoma
     Route: 065
  2. AMLODIPINE [Concomitant]
     Active Substance: AMLODIPINE BESYLATE

REACTIONS (3)
  - Cytokine release syndrome [Recovered/Resolved]
  - Immune effector cell-associated neurotoxicity syndrome [Recovered/Resolved]
  - Anaemia [Unknown]
